FAERS Safety Report 7201963-1 (Version None)
Quarter: 2010Q4

REPORT INFORMATION
  Report Type: 
  Country: None (occurrence: None)
  Receive Date: 20101229
  Receipt Date: 20100909
  Transmission Date: 20110411
  Serious: Yes (Hospitalization, Other)
  Sender: FDA-Public Use
  Company Number: US-BAYER-201012255NA

PATIENT
  Sex: Female
  Weight: 68.182 kg

DRUGS (15)
  1. YASMIN [Suspect]
     Indication: PREMENSTRUAL SYNDROME
     Dosage: 1 DF (DAILY DOSE), QD, ORAL
     Route: 048
     Dates: start: 20081007, end: 20081213
  2. YASMIN [Suspect]
  3. OCELLA [Suspect]
     Indication: PREMENSTRUAL SYNDROME
     Dates: start: 20081007, end: 20081213
  4. OCELLA [Suspect]
  5. YAZ [Suspect]
     Indication: PREMENSTRUAL SYNDROME
     Dates: start: 20081007, end: 20081213
  6. YAZ [Suspect]
  7. WELLBUTRIN XL [Concomitant]
     Indication: DEPRESSION
     Dosage: 1/2 TAB
     Route: 048
     Dates: start: 20080717
  8. BUDEPRION [Concomitant]
     Dosage: XL
     Dates: start: 20080813
  9. LUNESTA [Concomitant]
     Indication: INSOMNIA
     Dosage: AT BEDTIME
     Route: 048
     Dates: start: 20081017, end: 20081001
  10. OMEPRAZOLE [Concomitant]
     Dosage: 20 MG DR
     Route: 048
     Dates: start: 20081109
  11. TRAZODONE HCL [Concomitant]
     Dosage: 1-2 TABS AT BEDTIME
     Route: 048
     Dates: start: 20081111
  12. ETODOLAC [Concomitant]
     Indication: AFFECTIVE DISORDER
     Dosage: 1 TAB BID, PRN
     Route: 048
     Dates: start: 20081201
  13. FLEXERIL [Concomitant]
     Indication: PREMENSTRUAL SYNDROME
     Dosage: 10 MG (DAILY DOSE), , ORAL
     Route: 048
     Dates: start: 20081201
  14. TESSALON [Concomitant]
     Indication: PULMONARY EMBOLISM
     Dosage: 1 TID PRN
     Route: 048
     Dates: start: 20090220
  15. SERTRALINE HYDROCHLORIDE [Concomitant]
     Indication: PULMONARY EMBOLISM
     Dosage: 1/2 - 1 TAB QD
     Route: 048
     Dates: start: 20090114

REACTIONS (5)
  - DEEP VEIN THROMBOSIS [None]
  - HYPOAESTHESIA [None]
  - PAIN [None]
  - PULMONARY EMBOLISM [None]
  - SWELLING [None]
